FAERS Safety Report 6344421-9 (Version None)
Quarter: 2009Q3

REPORT INFORMATION
  Report Type: 
  Country: None (occurrence: None)
  Receive Date: 20090908
  Receipt Date: 20090831
  Transmission Date: 20100115
  Serious: Yes (Other)
  Sender: FDA-Public Use
  Company Number: PHEH2009US09091

PATIENT
  Sex: Male
  Weight: 101.13 kg

DRUGS (3)
  1. BLINDED NO TREATMENT RECEIVED NOMED [Suspect]
     Indication: METASTASES TO BONE
     Dosage: CODE NOT BROKEN
     Route: 042
     Dates: start: 20080828, end: 20090701
  2. BLINDED PLACEBO COMP-PLA+ [Suspect]
     Indication: METASTASES TO BONE
     Dosage: CODE NOT BROKEN
     Route: 042
     Dates: start: 20080828, end: 20090701
  3. BLINDED ZOLEDRONATE T29581+ [Suspect]
     Indication: METASTASES TO BONE
     Dosage: CODE NOT BROKEN
     Route: 042
     Dates: start: 20080828, end: 20090701

REACTIONS (2)
  - OSTEONECROSIS [None]
  - PERIODONTAL DISEASE [None]
